FAERS Safety Report 6435119-7 (Version None)
Quarter: 2009Q4

REPORT INFORMATION
  Report Type: 
  Country: None (occurrence: None)
  Receive Date: 20091110
  Receipt Date: 20091027
  Transmission Date: 20100525
  Serious: No
  Sender: FDA-Public Use
  Company Number: US-B.I. PHARMACEUTICALS,INC./RIDGEFIELD-2009-BP-12464BP

PATIENT
  Sex: Female

DRUGS (1)
  1. ALUPENT [Suspect]
     Indication: CHRONIC OBSTRUCTIVE PULMONARY DISEASE
     Dosage: 0.65 MG
     Route: 055
     Dates: start: 19890101, end: 19930101

REACTIONS (1)
  - PALPITATIONS [None]
